FAERS Safety Report 8077164-4 (Version None)
Quarter: 2012Q1

REPORT INFORMATION
  Report Type: 
  Country: None (occurrence: None)
  Receive Date: 20120127
  Receipt Date: 20120122
  Transmission Date: 20120608
  Serious: Yes (Other)
  Sender: FDA-Public Use
  Company Number: PHHY2012BR005999

PATIENT
  Sex: Female

DRUGS (6)
  1. BROMAZEPAM [Concomitant]
     Dosage: UNK UKN, UNK
  2. COMTAN [Suspect]
     Dosage: 200 MG, 4 TABLETS DAILY
     Route: 048
  3. LOVAZA [Concomitant]
     Dosage: UNK UKN, UNK
  4. PROLOPA [Concomitant]
     Dosage: BENSERAZIDE 200/ LEVODOPA 50
  5. CITALOPRAM [Concomitant]
     Dosage: UNK UKN, UNK
  6. VITAMIN TAB [Concomitant]
     Dosage: UNK UKN, UNK

REACTIONS (6)
  - ALLERGY TO CHEMICALS [None]
  - DRUG HYPERSENSITIVITY [None]
  - IODINE ALLERGY [None]
  - FOOD ALLERGY [None]
  - BLOOD PRESSURE DECREASED [None]
  - HYPERKERATOSIS [None]
